FAERS Safety Report 8843512 (Version 1)
Quarter: 2012Q4

REPORT INFORMATION
  Report Type: 
  Country: DE (occurrence: DE)
  Receive Date: 20121016
  Receipt Date: 20121016
  Transmission Date: 20130627
  Serious: Yes (Hospitalization, Congenital Anomaly, Other)
  Sender: FDA-Public Use
  Company Number: DE-PFIZER INC-2012252724

PATIENT
  Sex: Male

DRUGS (5)
  1. SERTRALINE HCL [Suspect]
     Indication: DEPRESSION
     Dosage: 100 mg, 1x/day
     Route: 064
     Dates: start: 20101001
  2. SERTRALINE HCL [Suspect]
     Dosage: 50 mg, 1x/day
     Route: 064
     Dates: end: 20111106
  3. AMOXYCILLIN/CLAVULANIC ACID [Suspect]
     Indication: STREPTOCOCCUS TEST POSITIVE
     Dosage: UNK
     Route: 064
     Dates: start: 20111106, end: 20111106
  4. FOLIC ACID [Suspect]
     Indication: PROPHYLAXIS OF NEURAL TUBE DEFECT
     Dosage: 0.8 mg, 1x/day
     Route: 064
     Dates: start: 20110213, end: 20111106
  5. UNSPECIFIED DRUG [Suspect]
     Indication: RHINITIS
     Route: 064

REACTIONS (9)
  - Maternal exposure timing unspecified [Unknown]
  - Neonatal respiratory distress syndrome [Recovered/Resolved]
  - Large for dates baby [Unknown]
  - Patent ductus arteriosus [Recovered/Resolved]
  - Atrial septal defect [Unknown]
  - Congenital tricuspid valve incompetence [Unknown]
  - Agitation neonatal [Recovered/Resolved]
  - Hypertonia neonatal [Recovered/Resolved]
  - Left atrial dilatation [Unknown]
